FAERS Safety Report 20345495 (Version 1)
Quarter: 2022Q1

REPORT INFORMATION
  Report Type: Spontaneous
  Country: US (occurrence: None)
  Receive Date: 20220114
  Receipt Date: 20220114
  Transmission Date: 20220423
  Serious: No
  Sender: FDA-Public Use
  Company Number: None

PATIENT
  Age: 57 Year
  Sex: Female
  Weight: 62.55 kg

DRUGS (4)
  1. SPRYCEL [Suspect]
     Active Substance: DASATINIB
     Indication: Chronic myeloid leukaemia
     Dosage: FREQUENCY : DAILY;?
     Route: 048
     Dates: start: 20211123
  2. Fish Oil 1000mg [Concomitant]
  3. TEA [Concomitant]
     Active Substance: TEA LEAF
  4. CHAMOMILE [Concomitant]
     Active Substance: CHAMOMILE

REACTIONS (1)
  - Constipation [None]

NARRATIVE: CASE EVENT DATE: 20220113
